FAERS Safety Report 13133615 (Version 1)
Quarter: 2017Q1

REPORT INFORMATION
  Report Type: Spontaneous
  Country: US (occurrence: US)
  Receive Date: 20170119
  Receipt Date: 20170119
  Transmission Date: 20170428
  Serious: No
  Sender: FDA-Public Use
  Company Number: None

PATIENT
  Age: 85 Year
  Sex: Female

DRUGS (1)
  1. REPATHA [Suspect]
     Active Substance: EVOLOCUMAB
     Indication: PRODUCT USED FOR UNKNOWN INDICATION
     Dosage: 140MG VERY 2 WEEKS
     Route: 058
     Dates: start: 20160426

REACTIONS (2)
  - Condition aggravated [None]
  - Alopecia [None]

NARRATIVE: CASE EVENT DATE: 20161201
